FAERS Safety Report 4627371-5 (Version None)
Quarter: 2005Q1

REPORT INFORMATION
  Report Type: 
  Country: None (occurrence: None)
  Receive Date: 20050331
  Receipt Date: 20050314
  Transmission Date: 20050727
  Serious: Yes (Hospitalization)
  Sender: FDA-Public Use
  Company Number: 200110877BFR

PATIENT
  Age: 58 Year
  Sex: Male

DRUGS (21)
  1. STALTOR (CERIVASTATIN) [Suspect]
     Indication: HYPERCHOLESTEROLAEMIA
     Dosage: ORAL
     Route: 048
     Dates: start: 19990101, end: 20000101
  2. CHOLSTAT (CERIVASTATIN) [Suspect]
     Indication: HYPERCHOLESTEROLAEMIA
     Dosage: ORAL
     Route: 048
     Dates: start: 20000229, end: 20000101
  3. COVERSYL [Concomitant]
  4. ALPRESS [Concomitant]
  5. FLUDEX [Concomitant]
  6. ZYLORIC [Concomitant]
  7. MOPRAL [Concomitant]
  8. PROPULSID [Concomitant]
  9. ATARAX [Concomitant]
  10. ASPEGIC 1000 [Concomitant]
  11. TAMARINE [Concomitant]
  12. KARDEGIC [Concomitant]
  13. AZANTAC [Concomitant]
  14. DIALGIREX [Concomitant]
  15. FONZYLANE [Concomitant]
  16. PIPRAM [Concomitant]
  17. EDUCTYL [Concomitant]
  18. MOVICOL [Concomitant]
  19. VITAMIN B1 AND B6 [Concomitant]
  20. DI-ANTALVIC [Concomitant]
  21. ATORVASTATIN CALCIUM [Concomitant]

REACTIONS (12)
  - ARTHRALGIA [None]
  - BACK PAIN [None]
  - BALANCE DISORDER [None]
  - CAROTID ARTERY STENOSIS [None]
  - CEREBROVASCULAR ACCIDENT [None]
  - DIFFICULTY IN WALKING [None]
  - FATIGUE [None]
  - HYDROCEPHALUS [None]
  - INSOMNIA [None]
  - INTERMITTENT CLAUDICATION [None]
  - MUSCULOSKELETAL DISORDER [None]
  - PAIN IN EXTREMITY [None]
